FAERS Safety Report 17101226 (Version 2)
Quarter: 2019Q4

REPORT INFORMATION
  Report Type: Spontaneous
  Country: JP (occurrence: JP)
  Receive Date: 20191202
  Receipt Date: 20191223
  Transmission Date: 20200122
  Serious: Yes (Other)
  Sender: FDA-Public Use
  Company Number: JP-BAYER-2019-212445

PATIENT

DRUGS (5)
  1. ADEMPAS [Suspect]
     Active Substance: RIOCIGUAT
     Indication: PULMONARY ARTERIAL HYPERTENSION
  2. TRACLEER [Concomitant]
     Active Substance: BOSENTAN
     Indication: SYSTEMIC SCLERODERMA
  3. ADEMPAS [Suspect]
     Active Substance: RIOCIGUAT
     Indication: SYSTEMIC SCLERODERMA
     Dosage: UNK
     Route: 048
     Dates: end: 20190912
  4. DENOPAMINE [Concomitant]
     Active Substance: DENOPAMINE
  5. TRACLEER [Concomitant]
     Active Substance: BOSENTAN
     Indication: PULMONARY ARTERIAL HYPERTENSION

REACTIONS (2)
  - Pulmonary arterial wedge pressure increased [None]
  - Pulmonary veno-occlusive disease [None]
